FAERS Safety Report 21361831 (Version 3)
Quarter: 2022Q4

REPORT INFORMATION
  Report Type: Other
  Country: CZ (occurrence: CZ)
  Receive Date: 20220922
  Receipt Date: 20221118
  Transmission Date: 20230112
  Serious: Yes (Other)
  Sender: FDA-Public Use
  Company Number: None

PATIENT
  Age: 74 Year
  Sex: Female

DRUGS (6)
  1. IBUPROFEN [Suspect]
     Active Substance: IBUPROFEN
     Indication: Back pain
     Dosage: 400 MILLIGRAM, PRN (ON DEMAND) (AS NEEDED)
     Route: 065
     Dates: start: 1988
  2. DICLOFENAC [Suspect]
     Active Substance: DICLOFENAC
     Indication: Back pain
     Dosage: 75 MILLIGRAM, UNKNOWN
     Route: 065
     Dates: start: 1988, end: 2013
  3. DICLOFENAC [Suspect]
     Active Substance: DICLOFENAC
     Dosage: UNK
     Route: 065
  4. NIMESULIDE [Suspect]
     Active Substance: NIMESULIDE
     Indication: Back pain
     Dosage: UNK, QD LONG-TERM USE OF NSAIDS
     Route: 065
     Dates: end: 2013
  5. NIMESULIDE [Suspect]
     Active Substance: NIMESULIDE
     Dosage: 75 MILLIGRAM, UNKNOWN
     Route: 065
     Dates: start: 1988, end: 2013
  6. CELECOXIB [Suspect]
     Active Substance: CELECOXIB
     Indication: Back pain
     Dosage: UNK
     Route: 065
     Dates: end: 2017

REACTIONS (4)
  - Contraindicated product administered [Unknown]
  - Gastrointestinal haemorrhage [Unknown]
  - Intestinal haemorrhage [Unknown]
  - Functional gastrointestinal disorder [Unknown]

NARRATIVE: CASE EVENT DATE: 20130101
